FAERS Safety Report 7932622-5 (Version None)
Quarter: 2011Q4

REPORT INFORMATION
  Report Type: 
  Country: None (occurrence: None)
  Receive Date: 20111122
  Receipt Date: 20111117
  Transmission Date: 20120403
  Serious: No
  Sender: FDA-Public Use
  Company Number: US-BIOGENIDEC-2011BI044034

PATIENT
  Sex: Female

DRUGS (4)
  1. AVONEX [Suspect]
     Route: 030
     Dates: start: 20030101
  2. MEDICINAL MARIJUANA [Concomitant]
     Indication: INSOMNIA
  3. MEDICINAL MARIJUANA [Concomitant]
     Indication: DEPRESSED MOOD
  4. AVONEX [Suspect]
     Indication: MULTIPLE SCLEROSIS
     Route: 030
     Dates: start: 19991226, end: 20030101

REACTIONS (2)
  - BALANCE DISORDER [None]
  - MEMORY IMPAIRMENT [None]
